FAERS Safety Report 16118786 (Version 1)
Quarter: 2019Q1

REPORT INFORMATION
  Report Type: Spontaneous
  Country: US (occurrence: US)
  Receive Date: 20190326
  Receipt Date: 20190326
  Transmission Date: 20190418
  Serious: No
  Sender: FDA-Public Use
  Company Number: US-JNJFOC-20190240252

PATIENT
  Sex: Female

DRUGS (2)
  1. WOMENS ROGAINE [Suspect]
     Active Substance: MINOXIDIL
     Indication: ALOPECIA
     Route: 048
  2. WOMENS ROGAINE [Suspect]
     Active Substance: MINOXIDIL
     Route: 048

REACTIONS (2)
  - Pain of skin [Not Recovered/Not Resolved]
  - Underdose [Unknown]
